FAERS Safety Report 20151373 (Version 1)
Quarter: 2021Q4

REPORT INFORMATION
  Report Type: Spontaneous
  Country: US (occurrence: US)
  Receive Date: 20211206
  Receipt Date: 20211206
  Transmission Date: 20220304
  Serious: Yes (Other)
  Sender: FDA-Public Use
  Company Number: US-PFIZER INC-202101655108

PATIENT
  Age: 29 Year
  Sex: Female

DRUGS (1)
  1. XELJANZ XR [Suspect]
     Active Substance: TOFACITINIB CITRATE
     Dosage: UNK
     Dates: start: 20210219

REACTIONS (6)
  - Pneumonia [Unknown]
  - Herpes zoster [Unknown]
  - Nausea [Unknown]
  - Localised infection [Unknown]
  - Breast cyst [Unknown]
  - Lung disorder [Unknown]
